FAERS Safety Report 22935529 (Version 4)
Quarter: 2023Q4

REPORT INFORMATION
  Report Type: Spontaneous
  Country: US (occurrence: US)
  Receive Date: 20230912
  Receipt Date: 20231101
  Transmission Date: 20240109
  Serious: Yes (Hospitalization, Other)
  Sender: FDA-Public Use
  Company Number: US-Calliditas-2023CAL01144

PATIENT
  Age: 63 Year
  Sex: Female
  Weight: 78.02 kg

DRUGS (2)
  1. TARPEYO [Suspect]
     Active Substance: BUDESONIDE
     Indication: IgA nephropathy
     Dosage: 16 MG (4 MG CAPSULES) ONCE DAILY
     Route: 048
     Dates: start: 20230826
  2. CLONIDINE [Concomitant]
     Active Substance: CLONIDINE

REACTIONS (18)
  - Headache [Unknown]
  - Peripheral swelling [Not Recovered/Not Resolved]
  - Fall [Unknown]
  - Pollakiuria [Unknown]
  - Abnormal dreams [Unknown]
  - Stress [Unknown]
  - Hypertensive urgency [Not Recovered/Not Resolved]
  - Pericardial effusion [Unknown]
  - Dyspnoea [Not Recovered/Not Resolved]
  - Pleural effusion [Recovering/Resolving]
  - Intestinal mass [Not Recovered/Not Resolved]
  - Muscle spasms [Not Recovered/Not Resolved]
  - Musculoskeletal stiffness [Not Recovered/Not Resolved]
  - Dysphagia [Not Recovered/Not Resolved]
  - Chest pain [Not Recovered/Not Resolved]
  - Rectal haemorrhage [Not Recovered/Not Resolved]
  - Chest discomfort [Not Recovered/Not Resolved]
  - Product dose omission issue [Recovered/Resolved]

NARRATIVE: CASE EVENT DATE: 20230901
